FAERS Safety Report 10257448 (Version 1)
Quarter: 2014Q2

REPORT INFORMATION
  Report Type: Spontaneous
  Country: US (occurrence: US)
  Receive Date: 20140625
  Receipt Date: 20140625
  Transmission Date: 20141212
  Serious: No
  Sender: FDA-Public Use
  Company Number: US-B.I. PHARMACEUTICALS,INC./RIDGEFIELD-2014-BI-27411BP

PATIENT
  Age: 74 Year
  Sex: Female
  Weight: 56.69 kg

DRUGS (7)
  1. SPIRIVA [Suspect]
     Indication: CHRONIC OBSTRUCTIVE PULMONARY DISEASE
     Dosage: 18 MCG
     Route: 055
     Dates: start: 201405
  2. ZEGRID [Concomitant]
     Indication: GASTROOESOPHAGEAL REFLUX DISEASE
     Route: 048
     Dates: start: 2014
  3. ZANTAC [Concomitant]
     Indication: DYSPEPSIA
     Dosage: 150 MG
     Route: 048
     Dates: start: 2014
  4. SIMETHICONE [Concomitant]
     Indication: DYSPEPSIA
     Route: 048
  5. LEVOTHYROXINE [Concomitant]
     Indication: HYPOTHYROIDISM
     Dosage: 50 MCG
     Route: 048
     Dates: start: 1960
  6. SOTOLOL [Concomitant]
     Indication: ARRHYTHMIA
     Dosage: 80 MG
     Route: 048
     Dates: start: 201406
  7. MYRBERTRIQ [Concomitant]
     Indication: CYSTITIS INTERSTITIAL
     Dosage: 25 MG
     Route: 048
     Dates: start: 201406, end: 201406

REACTIONS (7)
  - Increased upper airway secretion [Not Recovered/Not Resolved]
  - Gastrooesophageal reflux disease [Not Recovered/Not Resolved]
  - Cough [Not Recovered/Not Resolved]
  - Dry mouth [Not Recovered/Not Resolved]
  - Abdominal distension [Not Recovered/Not Resolved]
  - Dysphonia [Not Recovered/Not Resolved]
  - Abdominal pain upper [Recovered/Resolved]
